FAERS Safety Report 4555415-8 (Version None)
Quarter: 2005Q1

REPORT INFORMATION
  Report Type: 
  Country: None (occurrence: None)
  Receive Date: 20050119
  Receipt Date: 20041209
  Transmission Date: 20050727
  Serious: Yes (Other)
  Sender: FDA-Public Use
  Company Number: PHBS2004JP16643

PATIENT
  Age: 66 Year
  Sex: Male

DRUGS (3)
  1. LAMISIL [Suspect]
     Indication: NAIL TINEA
     Dates: start: 20041222
  2. LAMISIL [Suspect]
     Dosage: 125 MG, QD
     Route: 048
     Dates: start: 20041015, end: 20041030
  3. SOLON [Concomitant]
     Dosage: 1 DF/D
     Route: 048
     Dates: start: 20041015, end: 20041030

REACTIONS (4)
  - CALCULUS BLADDER [None]
  - CALCULUS URETERIC [None]
  - HAEMATURIA [None]
  - NEPHROLITHIASIS [None]
